FAERS Safety Report 9298723 (Version 3)
Quarter: 2014Q2

REPORT INFORMATION
  Report Type: Spontaneous
  Country: US (occurrence: US)
  Receive Date: 20130520
  Receipt Date: 20140627
  Transmission Date: 20141212
  Serious: Yes (Other)
  Sender: FDA-Public Use
  Company Number: US-PFIZER INC-2013151893

PATIENT
  Age: 62 Year
  Sex: Female
  Weight: 77 kg

DRUGS (6)
  1. LIPITOR [Suspect]
     Indication: LOW DENSITY LIPOPROTEIN INCREASED
     Dosage: 40 MG, DAILY
     Route: 048
     Dates: start: 200903, end: 2010
  2. LIPITOR [Suspect]
     Dosage: 20 MG, DAILY
     Route: 048
     Dates: start: 2010, end: 2011
  3. LIPITOR [Suspect]
     Dosage: 20MG-40MG DAILY
     Route: 048
     Dates: start: 2011, end: 2012
  4. LIPITOR [Suspect]
     Dosage: 40 MG, DAILY
     Route: 048
     Dates: start: 2012
  5. ATORVASTATIN CALCIUM [Suspect]
     Indication: BLOOD CHOLESTEROL
     Dosage: 40 MG, DAILY
     Dates: start: 2012
  6. ASPIRIN [Concomitant]
     Indication: PROPHYLAXIS
     Dosage: 81 MG, DAILY
     Dates: start: 2002

REACTIONS (2)
  - Type 2 diabetes mellitus [Unknown]
  - Nephropathy [Unknown]
